FAERS Safety Report 13664454 (Version 1)
Quarter: 2017Q2

REPORT INFORMATION
  Report Type: Spontaneous
  Country: US (occurrence: US)
  Receive Date: 20170618
  Receipt Date: 20170618
  Transmission Date: 20170830
  Serious: Yes (Hospitalization)
  Sender: FDA-Public Use
  Company Number: None

PATIENT
  Age: 73 Year
  Sex: Male

DRUGS (2)
  1. LEVOFLOXACIN. [Suspect]
     Active Substance: LEVOFLOXACIN
     Indication: SEPSIS
     Route: 048
     Dates: start: 20170403, end: 20170405
  2. LEVOFLOXACIN. [Suspect]
     Active Substance: LEVOFLOXACIN
     Indication: URINARY TRACT INFECTION
     Route: 048
     Dates: start: 20170403, end: 20170405

REACTIONS (7)
  - Nausea [None]
  - Vomiting [None]
  - Hypophagia [None]
  - Bundle branch block right [None]
  - Dizziness [None]
  - Electrocardiogram QT prolonged [None]
  - Sluggishness [None]

NARRATIVE: CASE EVENT DATE: 20170405
